FAERS Safety Report 4894945-6 (Version None)
Quarter: 2006Q1

REPORT INFORMATION
  Report Type: 
  Country: None (occurrence: None)
  Receive Date: 20060130
  Receipt Date: 20050426
  Transmission Date: 20060701
  Serious: No
  Sender: FDA-Public Use
  Company Number: US-BRISTOL-MYERS SQUIBB COMPANY-12946968

PATIENT
  Age: 35 Year
  Sex: Female
  Weight: 54 kg

DRUGS (3)
  1. METFORMIN HCL [Suspect]
     Indication: POLYCYSTIC OVARIES
  2. LEVOXYL [Concomitant]
  3. SPIRONOLACTONE [Concomitant]

REACTIONS (1)
  - HEADACHE [None]
